FAERS Safety Report 6915939 (Version 3)
Quarter: 2020Q3

REPORT INFORMATION
  Report Type: Spontaneous
  Country: GB (occurrence: GB)
  Receive Date: 20090223
  Receipt Date: 20200929
  Transmission Date: 20201103
  Serious: Yes (Life-Threatening, Hospitalization, Other)
  Sender: FDA-Public Use
  Company Number: GB-PFIZER INC-2009167644

PATIENT
  Age: 9 Year
  Sex: Male

DRUGS (4)
  1. ETHOSUXIMIDE. [Suspect]
     Active Substance: ETHOSUXIMIDE
     Indication: SEIZURE
     Dosage: 33 MG/KG, 1X/DAY
  2. VALPROIC ACID. [Interacting]
     Active Substance: VALPROIC ACID
     Indication: SEIZURE
     Dosage: 33 MG/KG, 1X/DAY
  3. LAMOTRIGINE. [Concomitant]
     Active Substance: LAMOTRIGINE
     Indication: SEIZURE
     Dosage: 2 MG/KG, 1X/DAY
  4. CLOBAZAM. [Interacting]
     Active Substance: CLOBAZAM
     Indication: SEIZURE
     Dosage: 1.5 MG/KG, 1X/DAY

REACTIONS (7)
  - Erythema [Recovered/Resolved]
  - Coma blister [Recovered/Resolved]
  - Depressed level of consciousness [Recovered/Resolved]
  - Angioedema [Recovered/Resolved]
  - Sweat gland disorder [Recovered/Resolved]
  - Drug interaction [Recovered/Resolved]
  - Liver function test abnormal [Recovered/Resolved]
